FAERS Safety Report 20774305 (Version 1)
Quarter: 2022Q2

REPORT INFORMATION
  Report Type: Report from Study
  Country: IT (occurrence: IT)
  Receive Date: 20220502
  Receipt Date: 20220502
  Transmission Date: 20220721
  Serious: Yes (Other)
  Sender: FDA-Public Use
  Company Number: None

PATIENT
  Age: 52 Year
  Sex: Female

DRUGS (3)
  1. EPIRUBICIN HYDROCHLORIDE [Suspect]
     Active Substance: EPIRUBICIN HYDROCHLORIDE
     Indication: Breast cancer
     Dosage: UNIT DOSE: 160 MG, FREQUENCY TIME : 1 CYCLICAL
     Dates: start: 20220223
  2. CYCLOPHOSPHAMIDE [Suspect]
     Active Substance: CYCLOPHOSPHAMIDE
     Dosage: STRENGTH: 1 GM
  3. DECADRON [Suspect]
     Active Substance: DEXAMETHASONE
     Dosage: 8 MG / 2 ML SOLUTION FOR INJECTION - 3 VIALS OF 2 ML

REACTIONS (3)
  - Neutropenia [Unknown]
  - Flushing [Unknown]
  - Papule [Unknown]

NARRATIVE: CASE EVENT DATE: 20220304
